FAERS Safety Report 5747729-0 (Version None)
Quarter: 2008Q2

REPORT INFORMATION
  Report Type: 
  Country: None (occurrence: None)
  Receive Date: 20080523
  Receipt Date: 20080513
  Transmission Date: 20081010
  Serious: Yes (Hospitalization)
  Sender: FDA-Public Use
  Company Number: JP-ASTRAZENECA-2008SE02594

PATIENT
  Age: 20929 Day
  Sex: Male
  Weight: 67 kg

DRUGS (3)
  1. BLOPRESS [Suspect]
     Indication: HYPERTENSION
     Route: 048
     Dates: start: 20060724, end: 20071205
  2. BLOPRESS [Suspect]
     Route: 048
     Dates: start: 20071206, end: 20080107
  3. BLOPRESS [Suspect]
     Route: 048
     Dates: start: 20080321, end: 20080331

REACTIONS (1)
  - MENIERE'S DISEASE [None]
